FAERS Safety Report 18105248 (Version 1)
Quarter: 2020Q3

REPORT INFORMATION
  Report Type: Spontaneous
  Country: CA (occurrence: CA)
  Receive Date: 20200803
  Receipt Date: 20200803
  Transmission Date: 20201103
  Serious: Yes (Other)
  Sender: FDA-Public Use
  Company Number: CA-TEVA-2020-CA-1808827

PATIENT
  Age: 71 Year
  Sex: Male

DRUGS (9)
  1. BLUE CANNABIS SOFTGELS (HYBRID) BY SPECTRUM CANNABIS [Interacting]
     Active Substance: CANNABIDIOL\.DELTA.8-TETRAHYDROCANNABINOL
     Indication: PAIN
  2. YELLOW CANNABIS SOFTGELS (HYBRID) BY SPECTRUM CANNABIS [Concomitant]
     Active Substance: CANNABIDIOL\.DELTA.8-TETRAHYDROCANNABINOL\HERBALS
  3. ADVIL [Concomitant]
     Active Substance: IBUPROFEN
  4. ALEVE [Concomitant]
     Active Substance: NAPROXEN SODIUM
  5. LORAZEPAM. [Suspect]
     Active Substance: LORAZEPAM
     Indication: SLEEP DISORDER
     Route: 065
  6. MORPHINE [Concomitant]
     Active Substance: MORPHINE
  7. TYLENOL [Concomitant]
     Active Substance: ACETAMINOPHEN
  8. BLUE CANNABIS SOFTGELS (HYBRID) BY SPECTRUM CANNABIS [Interacting]
     Active Substance: CANNABIDIOL\.DELTA.8-TETRAHYDROCANNABINOL
     Indication: SLEEP DISORDER
     Dosage: 1 DOSAGE FORMS DAILY;
     Route: 048
  9. ROBAXACET [Concomitant]
     Active Substance: ACETAMINOPHEN\METHOCARBAMOL

REACTIONS (13)
  - Muscular weakness [Unknown]
  - Nasal congestion [Unknown]
  - Influenza like illness [Unknown]
  - Inguinal hernia [Unknown]
  - Loss of consciousness [Unknown]
  - Retching [Unknown]
  - Drug interaction [Unknown]
  - Cold sweat [Unknown]
  - Contusion [Unknown]
  - Fall [Unknown]
  - Anal incontinence [Unknown]
  - Dry mouth [Unknown]
  - Spondylolisthesis [Unknown]
